FAERS Safety Report 6075616-X (Version None)
Quarter: 2009Q1

REPORT INFORMATION
  Report Type: 
  Country: None (occurrence: None)
  Receive Date: 20090212
  Receipt Date: 20090203
  Transmission Date: 20090719
  Serious: Yes (Other)
  Sender: FDA-Public Use
  Company Number: FR-PFIZER INC-2009165221

PATIENT

DRUGS (9)
  1. LYRICA [Suspect]
     Indication: NEURALGIA
     Dosage: 100 MG, 2X/DAY
     Dates: start: 20080801
  2. GLUCOPHAGE [Concomitant]
     Dosage: UNK, 3X/DAY
  3. PRAXILENE [Concomitant]
     Dosage: UNK
  4. TADENAN [Concomitant]
     Dosage: UNK
  5. EZETIMIBE/SIMVASTATIN [Concomitant]
     Dosage: UNK
  6. NEBIVOLOL [Concomitant]
     Dosage: UNK
  7. IRBESARTAN [Concomitant]
     Dosage: UNK
  8. DIAMICRON [Concomitant]
     Dosage: UNK
  9. AMLOD [Concomitant]
     Dosage: UNK

REACTIONS (1)
  - JAUNDICE [None]
